FAERS Safety Report 7885494-1 (Version None)
Quarter: 2011Q4

REPORT INFORMATION
  Report Type: 
  Country: None (occurrence: None)
  Receive Date: 20111102
  Receipt Date: 20111021
  Transmission Date: 20120403
  Serious: Yes (Hospitalization)
  Sender: FDA-Public Use
  Company Number: US-BAYER-2011-073700

PATIENT
  Age: 30 Year
  Sex: Female
  Weight: 95.692 kg

DRUGS (4)
  1. LEVAQUIN [Concomitant]
     Dosage: UNK
     Dates: start: 20090301
  2. FLAGYL [Concomitant]
     Dosage: UNK
     Dates: start: 20090301
  3. YAZ [Suspect]
     Indication: CONTRACEPTION
     Dosage: UNK
     Dates: start: 20081001, end: 20090601
  4. DOXYCYCLINE [Concomitant]
     Dosage: UNK
     Dates: start: 20090301

REACTIONS (5)
  - EMOTIONAL DISTRESS [None]
  - CHOLECYSTITIS CHRONIC [None]
  - INJURY [None]
  - CHOLECYSTECTOMY [None]
  - CHOLELITHIASIS [None]
